FAERS Safety Report 15863311 (Version 1)
Quarter: 2019Q1

REPORT INFORMATION
  Report Type: Spontaneous
  Country: FR (occurrence: FR)
  Receive Date: 20190124
  Receipt Date: 20190124
  Transmission Date: 20190417
  Serious: Yes (Hospitalization)
  Sender: FDA-Public Use
  Company Number: FR-BAUSCH-BL-2019-002285

PATIENT
  Age: 76 Year
  Sex: Female

DRUGS (3)
  1. CLOBETASOL PROPIONATE. [Suspect]
     Active Substance: CLOBETASOL PROPIONATE
     Dosage: TAPERED TO A DOSE LOWER THAN 10 G/D
     Route: 061
  2. MYCOPHENOLATE MOFETIL. [Suspect]
     Active Substance: MYCOPHENOLATE MOFETIL
     Indication: PEMPHIGOID
     Dosage: AT MONTH 8
     Route: 065
  3. CLOBETASOL PROPIONATE. [Suspect]
     Active Substance: CLOBETASOL PROPIONATE
     Indication: PEMPHIGOID
     Route: 061

REACTIONS (1)
  - Necrotising fasciitis [Not Recovered/Not Resolved]
